FAERS Safety Report 24444071 (Version 2)
Quarter: 2024Q4

REPORT INFORMATION
  Report Type: Report from Study
  Country: US (occurrence: US)
  Receive Date: 20241016
  Receipt Date: 20241017
  Transmission Date: 20250115
  Serious: No
  Sender: ROCHE
  Company Number: US-ROCHE-2528820

PATIENT
  Age: 72 Year
  Sex: Female
  Weight: 62.6 kg

DRUGS (16)
  1. RITUXAN [Suspect]
     Active Substance: RITUXIMAB
     Indication: Myasthenia gravis
     Dosage: ONGOING: NO?STRENGTH: 600 MG, WEEKLY*4, THEN MONTHLY 2 VIAL
     Route: 042
     Dates: start: 20190801, end: 20191016
  2. RITUXAN [Suspect]
     Active Substance: RITUXIMAB
     Dosage: INFUSE 600MG INTRAVENOUSLY ONCE A MONTH FOR 2 DOSES, 10ML VIAL
     Route: 042
  3. RITUXAN [Suspect]
     Active Substance: RITUXIMAB
     Dosage: INFUSE 600MG INTRAVENOUSLY ONCE A MONTH FOR 2 DOSES, 50ML VIAL
     Route: 042
  4. LEVOTHYROXINE [Concomitant]
     Active Substance: LEVOTHYROXINE
     Indication: Hypothyroidism
     Dosage: 150MCG TABLET
     Route: 048
  5. FOSAMAX [Concomitant]
     Active Substance: ALENDRONATE SODIUM
     Indication: Osteoporosis
     Dosage: 70MG TABLET
     Route: 048
     Dates: start: 201904
  6. PREDNISONE [Concomitant]
     Active Substance: PREDNISONE
     Indication: Myasthenia gravis
     Dosage: TAPER OFF TO 10MG EVERY OTHER DAY ;ONGOING: YES
     Route: 048
     Dates: start: 201906
  7. PYRIDOSTIGMINE [Concomitant]
     Active Substance: PYRIDOSTIGMINE
  8. PRAVACHOL [Concomitant]
     Active Substance: PRAVASTATIN SODIUM
     Dosage: 40MG TABLET, TAKE 40MG BY MOUTH DAILY
     Route: 048
  9. TYLENOL [Concomitant]
     Active Substance: ACETAMINOPHEN
     Dosage: 650MG TABLET, ONCE
     Route: 048
  10. CETIRIZINE HYDROCHLORIDE [Concomitant]
     Active Substance: CETIRIZINE HYDROCHLORIDE
     Dosage: 10MG, ONCE
     Route: 048
  11. DECADRON [Concomitant]
     Active Substance: DEXAMETHASONE
     Dosage: 12MG, ONCE
     Route: 048
  12. BENADRYL [Concomitant]
     Active Substance: DIPHENHYDRAMINE HYDROCHLORIDE
     Dosage: 50MG INJECTION, IV, PRN? FREQUENCY TEXT:PRN
     Route: 042
  13. SOLU-CORTEF [Concomitant]
     Active Substance: HYDROCORTISONE SODIUM SUCCINATE
     Dosage: 100MG/2ML INJECTION 100MG, IV, PRN? FREQUENCY TEXT:PRN
     Route: 042
  14. PROVENTIL HFA [Concomitant]
     Active Substance: ALBUTEROL SULFATE
  15. VENTOLIN HFA [Concomitant]
     Active Substance: ALBUTEROL SULFATE
  16. CALCIUM\CHOLECALCIFEROL [Concomitant]
     Active Substance: CALCIUM\CHOLECALCIFEROL
     Indication: Osteoporosis
     Route: 048
     Dates: start: 201904

REACTIONS (3)
  - Off label use [Unknown]
  - No adverse event [Unknown]
  - Product prescribing error [Unknown]
